FAERS Safety Report 5116865-4 (Version None)
Quarter: 2006Q3

REPORT INFORMATION
  Report Type: 
  Country: None (occurrence: None)
  Receive Date: 20060925
  Receipt Date: 20060919
  Transmission Date: 20061208
  Serious: Yes (Life-Threatening, Hospitalization)
  Sender: FDA-Public Use
  Company Number: 167-C5013-06090754

PATIENT
  Age: 61 Year
  Sex: Female

DRUGS (1)
  1. REVLIMID [Suspect]
     Indication: MYELODYSPLASTIC SYNDROME
     Dosage: 10 MG, ORAL
     Route: 048
     Dates: start: 20060628, end: 20060918

REACTIONS (5)
  - CARDIAC ARREST [None]
  - CHEST PAIN [None]
  - INFECTION [None]
  - PERICARDITIS [None]
  - SEPSIS [None]
